FAERS Safety Report 26123901 (Version 1)
Quarter: 2025Q4

REPORT INFORMATION
  Report Type: Spontaneous
  Country: EU (occurrence: EU)
  Receive Date: 20251205
  Receipt Date: 20251205
  Transmission Date: 20260118
  Serious: Yes (Hospitalization)
  Sender: ROCHE
  Company Number: None

PATIENT
  Age: 44 Year
  Sex: Male
  Weight: 59 kg

DRUGS (15)
  1. OBINUTUZUMAB [Suspect]
     Active Substance: OBINUTUZUMAB
     Indication: Mantle cell lymphoma
     Route: 042
     Dates: start: 20230411, end: 20230425
  2. OBINUTUZUMAB [Suspect]
     Active Substance: OBINUTUZUMAB
     Route: 042
     Dates: start: 20230516, end: 20231107
  3. OBINUTUZUMAB [Suspect]
     Active Substance: OBINUTUZUMAB
     Route: 042
     Dates: start: 20240112, end: 20241024
  4. OBINUTUZUMAB [Suspect]
     Active Substance: OBINUTUZUMAB
     Route: 042
     Dates: start: 20250124, end: 20250516
  5. IBRUTINIB [Suspect]
     Active Substance: IBRUTINIB
     Indication: Mantle cell lymphoma
     Dosage: CACHET
     Route: 002
     Dates: start: 20230411, end: 20231129
  6. IBRUTINIB [Suspect]
     Active Substance: IBRUTINIB
     Dosage: CACHET
     Route: 002
     Dates: start: 20231130, end: 20240221
  7. IBRUTINIB [Suspect]
     Active Substance: IBRUTINIB
     Dosage: CACHET
     Route: 002
     Dates: start: 20240222, end: 20250227
  8. VENETOCLAX [Suspect]
     Active Substance: VENETOCLAX
     Indication: Mantle cell lymphoma
     Route: 002
     Dates: start: 20230516, end: 20230522
  9. VENETOCLAX [Suspect]
     Active Substance: VENETOCLAX
     Route: 002
     Dates: start: 20230523, end: 20230529
  10. VENETOCLAX [Suspect]
     Active Substance: VENETOCLAX
     Route: 002
     Dates: start: 20230530, end: 20230605
  11. VENETOCLAX [Suspect]
     Active Substance: VENETOCLAX
     Dosage: CACHET
     Route: 002
     Dates: start: 20230606, end: 20230612
  12. VENETOCLAX [Suspect]
     Active Substance: VENETOCLAX
     Route: 002
     Dates: start: 20230626, end: 20230904
  13. VENETOCLAX [Suspect]
     Active Substance: VENETOCLAX
     Route: 002
     Dates: start: 20230919, end: 20230919
  14. VENETOCLAX [Suspect]
     Active Substance: VENETOCLAX
     Route: 002
     Dates: start: 20230906, end: 20241230
  15. VENETOCLAX [Suspect]
     Active Substance: VENETOCLAX
     Route: 002
     Dates: start: 20240112, end: 20250320

REACTIONS (1)
  - Interstitial lung disease [Not Recovered/Not Resolved]

NARRATIVE: CASE EVENT DATE: 20250201
